FAERS Safety Report 8433398 (Version 6)
Quarter: 2013Q2

REPORT INFORMATION
  Report Type: Spontaneous
  Country: US (occurrence: US)
  Receive Date: 20120229
  Receipt Date: 20130422
  Transmission Date: 20140414
  Serious: Yes (Hospitalization, Other)
  Sender: FDA-Public Use
  Company Number: US-PFIZER INC-2012049489

PATIENT
  Age: 56 Year
  Sex: Male
  Weight: 77.1 kg

DRUGS (2)
  1. LYRICA [Suspect]
     Indication: PAIN
     Dosage: 75 MG, 2X/DAY
  2. NORVASC [Suspect]
     Dosage: UNK

REACTIONS (5)
  - Vascular occlusion [Unknown]
  - Peripheral arterial occlusive disease [Unknown]
  - Dysarthria [Unknown]
  - Pain in extremity [Unknown]
  - Feeling abnormal [Unknown]
